FAERS Safety Report 8950347 (Version 1)
Quarter: 2012Q4

REPORT INFORMATION
  Report Type: Spontaneous
  Country: US (occurrence: None)
  Receive Date: 20121130
  Receipt Date: 20121130
  Transmission Date: 20130627
  Serious: Yes (Other)
  Sender: FDA-Public Use
  Company Number: None

PATIENT
  Age: 39 Year
  Sex: Female
  Weight: 55.79 kg

DRUGS (2)
  1. ORACEA [Suspect]
     Indication: ACNE
     Dosage: 40mg  1/daily in AM po
     Route: 048
     Dates: start: 20121107, end: 20121120
  2. ORACEA [Suspect]
     Indication: ROSACEA
     Dosage: 40mg  1/daily in AM po
     Route: 048
     Dates: start: 20121107, end: 20121120

REACTIONS (4)
  - Excessive exercise [None]
  - Pyrexia [None]
  - Blood pressure increased [None]
  - Migraine [None]
